FAERS Safety Report 7406791-X (Version None)
Quarter: 2011Q2

REPORT INFORMATION
  Report Type: 
  Country: None (occurrence: None)
  Receive Date: 20110411
  Receipt Date: 20110328
  Transmission Date: 20111010
  Serious: Yes (Disabling, Other)
  Sender: FDA-Public Use
  Company Number: PHHY2011GB24999

PATIENT
  Age: 79 Year
  Sex: Male

DRUGS (8)
  1. IBUPROFEN [Concomitant]
     Dosage: UNK
     Dates: start: 20110309
  2. ATORVASTATIN [Concomitant]
     Dosage: UNK
     Dates: start: 20101125
  3. OMEPRAZOLE [Concomitant]
     Dosage: UNK
     Dates: start: 20110309
  4. TRAMADOL HCL [Suspect]
     Dosage: UNK
     Dates: start: 20110318
  5. ASPIRIN [Concomitant]
     Dosage: UNK
     Dates: start: 20101125
  6. LISINOPRIL [Concomitant]
     Dosage: UNK
     Dates: start: 20101125
  7. PARACETAMOL [Concomitant]
     Dosage: UNK
     Dates: start: 20110105
  8. ATENOLOL [Concomitant]
     Dosage: UNK
     Dates: start: 20101125

REACTIONS (2)
  - NERVOUS SYSTEM DISORDER [None]
  - CONFUSIONAL STATE [None]
